FAERS Safety Report 18157327 (Version 3)
Quarter: 2020Q3

REPORT INFORMATION
  Report Type: Spontaneous
  Country: CN (occurrence: CN)
  Receive Date: 20200817
  Receipt Date: 20200928
  Transmission Date: 20201103
  Serious: Yes (Other)
  Sender: FDA-Public Use
  Company Number: CN-GLAXOSMITHKLINE-CN2020APC157400

PATIENT

DRUGS (5)
  1. SERETIDE [Suspect]
     Active Substance: FLUTICASONE PROPIONATE\SALMETEROL XINAFOATE
     Indication: CHRONIC OBSTRUCTIVE PULMONARY DISEASE
     Dosage: 1 DF, QD,(50/250 UG) MORNING 1 INHALATION AND NIGHT 1 INHALATION
     Route: 055
     Dates: start: 201103
  2. SERETIDE [Suspect]
     Active Substance: FLUTICASONE PROPIONATE\SALMETEROL XINAFOATE
     Dosage: 1 DF, QD,(50/250 UG) MORNING 1 INHALATION AND NIGHT 1 INHALATION
     Route: 055
     Dates: start: 201103
  3. SERETIDE [Suspect]
     Active Substance: FLUTICASONE PROPIONATE\SALMETEROL XINAFOATE
     Dosage: 1 DF, QD. 50/500 UG
     Route: 055
  4. ANORO ELLIPTA [Suspect]
     Active Substance: UMECLIDINIUM BROMIDE\VILANTEROL TRIFENATATE
     Indication: CHRONIC OBSTRUCTIVE PULMONARY DISEASE
     Dosage: 1 DF, QD(62.5/25 UG)
     Route: 055
     Dates: start: 20200810, end: 20200817
  5. SPIRIVA [Concomitant]
     Active Substance: TIOTROPIUM BROMIDE MONOHYDRATE
     Indication: CHRONIC OBSTRUCTIVE PULMONARY DISEASE
     Dosage: 1 DF, QD
     Route: 055
     Dates: start: 201103, end: 201107

REACTIONS (13)
  - Condition aggravated [Unknown]
  - Weight decreased [Unknown]
  - Headache [Recovered/Resolved]
  - Bladder neoplasm [Not Recovered/Not Resolved]
  - Urinary retention [Recovered/Resolved]
  - Cough [Recovered/Resolved]
  - Product taste abnormal [Not Recovered/Not Resolved]
  - Off label use [Unknown]
  - Product use in unapproved indication [Unknown]
  - Oral candidiasis [Not Recovered/Not Resolved]
  - Rhinorrhoea [Unknown]
  - Pulmonary function test decreased [Unknown]
  - Oral disorder [Unknown]

NARRATIVE: CASE EVENT DATE: 20200810
